FAERS Safety Report 5500279-9 (Version None)
Quarter: 2007Q4

REPORT INFORMATION
  Report Type: 
  Country: None (occurrence: None)
  Receive Date: 20071025
  Receipt Date: 20070213
  Transmission Date: 20080405
  Serious: Yes (Life-Threatening)
  Sender: FDA-Public Use
  Company Number: ESPFI-E-20060001

PATIENT
  Age: 75 Year
  Sex: Female

DRUGS (2)
  1. NAVELBINE [Suspect]
     Dosage: 40 MG QD IV
     Route: 042
     Dates: start: 20050831, end: 20050831
  2. GEMZAR [Suspect]
     Dosage: 0 MG QD IV
     Route: 042
     Dates: start: 20050831, end: 20050831

REACTIONS (6)
  - CARDIAC FAILURE [None]
  - CARDIOVASCULAR INSUFFICIENCY [None]
  - HEPATITIS [None]
  - INTERSTITIAL LUNG DISEASE [None]
  - LACTIC ACIDOSIS [None]
  - PNEUMONITIS [None]
